FAERS Safety Report 8943308 (Version 5)
Quarter: 2013Q4

REPORT INFORMATION
  Report Type: Report from Study
  Country: GR (occurrence: GR)
  Receive Date: 20121203
  Receipt Date: 20131204
  Transmission Date: 20140711
  Serious: Yes (Other)
  Sender: FDA-Public Use
  Company Number: GR-PFIZER INC-2012280817

PATIENT
  Age: 67 Year
  Sex: Male
  Weight: 68 kg

DRUGS (8)
  1. TORISEL [Suspect]
     Indication: RENAL CANCER METASTATIC
     Dosage: 25 MG, WEEKLY
     Route: 042
     Dates: start: 20120904, end: 20121009
  2. BEVACIZUMAB [Suspect]
     Indication: RENAL CELL CARCINOMA
     Dosage: 700 MG, BIWEEKLY
     Route: 042
     Dates: start: 20120904, end: 20121002
  3. NORVASC [Concomitant]
     Indication: HYPERTENSION
     Dosage: 5 MG, 1X/DAY
     Route: 048
     Dates: start: 20120710, end: 20121104
  4. EXFORGE [Concomitant]
     Indication: HYPERTENSION
     Dosage: 5 MG/160 MG, DAILY
     Route: 048
     Dates: start: 20111209, end: 20121104
  5. GLUCOPHAGE [Concomitant]
     Indication: DIABETES MELLITUS
     Dosage: 850 G, DAILY
     Route: 048
     Dates: start: 2010, end: 20121104
  6. OMNIC TOCAS [Concomitant]
     Indication: BENIGN PROSTATIC HYPERPLASIA
     Dosage: 0.4 G, DAILY
     Route: 048
     Dates: start: 2010, end: 20121104
  7. INSULIN [Concomitant]
     Indication: DIABETES MELLITUS
     Dosage: 15 IU, 1X/DAY
     Route: 058
     Dates: start: 2010, end: 20121104
  8. BIOCRIF [Concomitant]
     Indication: ANAEMIA
     Dosage: 40000 IU, WEEKLY
     Route: 058
     Dates: start: 20120704, end: 20121104

REACTIONS (1)
  - Pneumonitis [Not Recovered/Not Resolved]
